FAERS Safety Report 4340990-9 (Version None)
Quarter: 2004Q2

REPORT INFORMATION
  Report Type: 
  Country: None (occurrence: None)
  Receive Date: 20040413
  Receipt Date: 20040401
  Transmission Date: 20050107
  Serious: Yes (Death, Other)
  Sender: FDA-Public Use
  Company Number: EMADSS2003003653

PATIENT
  Age: 62 Year
  Sex: Male

DRUGS (6)
  1. REMICADE [Suspect]
     Indication: CROHN'S DISEASE
     Dosage: 5 MG/KG, 1 IN 1 AS NECESSARY, INTRAVENOUS DRIP
     Route: 041
     Dates: start: 20030304, end: 20030304
  2. STEROIDS NOS (CORTICOSTEROID NOS) UNSPECIFIED [Concomitant]
  3. AZATHIOPRINE [Concomitant]
  4. METRONIDAZOLE [Concomitant]
  5. MESALAZINE (MESALAZINE) [Concomitant]
  6. ANTI-DIABETIC NOS (DRUG USED IN DIABETES) [Concomitant]

REACTIONS (2)
  - MENINGITIS LISTERIA [None]
  - SEPSIS [None]
